FAERS Safety Report 4462578-1 (Version None)
Quarter: 2004Q3

REPORT INFORMATION
  Report Type: 
  Country: None (occurrence: None)
  Receive Date: 20040924
  Receipt Date: 20040915
  Transmission Date: 20050211
  Serious: Yes (Hospitalization)
  Sender: FDA-Public Use
  Company Number: DE-2004-028776

PATIENT
  Age: 43 Year
  Sex: Female

DRUGS (1)
  1. MIRENA [Suspect]
     Dosage: 20 ?G/DAY, CON, INTRA-UTERINE
     Route: 015
     Dates: start: 20000601, end: 20040716

REACTIONS (1)
  - BRAIN STEM INFARCTION [None]
